FAERS Safety Report 11044127 (Version 1)
Quarter: 2015Q2

REPORT INFORMATION
  Report Type: Spontaneous
  Country: US (occurrence: None)
  Receive Date: 20150415
  Receipt Date: 20150415
  Transmission Date: 20150821
  Serious: Yes (Other)
  Sender: FDA-Public Use
  Company Number: IPC201504-000194

PATIENT
  Age: 68 Year
  Sex: Male

DRUGS (1)
  1. FUROSEMIDE (FUROSEMIDE) (FUROSEMIDE) [Suspect]
     Active Substance: FUROSEMIDE

REACTIONS (1)
  - Pseudoporphyria [None]
